FAERS Safety Report 4387938-9 (Version None)
Quarter: 2004Q2

REPORT INFORMATION
  Report Type: 
  Country: None (occurrence: None)
  Receive Date: 20040630
  Receipt Date: 20040420
  Transmission Date: 20050107
  Serious: Yes (Death, Hospitalization)
  Sender: FDA-Public Use
  Company Number: BE-MERCK-0404BEL00028

PATIENT
  Age: 9 Year
  Sex: Male

DRUGS (8)
  1. AMOXICILLIN AND CLAVULANATE POTASSIUM [Concomitant]
     Indication: INTERSTITIAL LUNG DISEASE
     Route: 042
     Dates: start: 20040407, end: 20040412
  2. BUDESONIDE AND FORMOTEROL FUMARATE [Concomitant]
     Route: 055
  3. CEFUROXIME SODIUM [Concomitant]
     Indication: INTERSTITIAL LUNG DISEASE
     Route: 042
     Dates: start: 20040401, end: 20040412
  4. COUGH, COLD, AND FLU THERAPIES (UNSPECIFIED) [Concomitant]
     Indication: COUGH
     Route: 055
     Dates: start: 20040407, end: 20040412
  5. FLOXACILLIN SODIUM [Concomitant]
     Indication: INTERSTITIAL LUNG DISEASE
     Route: 042
     Dates: start: 20040407, end: 20040412
  6. FLUTICASONE PROPIONATE AND SALMETEROL XINAFOATE [Concomitant]
     Route: 055
     Dates: end: 20040412
  7. SINGULAIR [Suspect]
     Indication: ASTHMA
     Route: 048
     Dates: start: 20030101, end: 20040412
  8. SINGULAIR [Suspect]
     Route: 048
     Dates: start: 20020101, end: 20030101

REACTIONS (3)
  - ALLERGIC GRANULOMATOUS ANGIITIS [None]
  - MULTI-ORGAN FAILURE [None]
  - SEPTIC SHOCK [None]
